FAERS Safety Report 16149978 (Version 3)
Quarter: 2019Q3

REPORT INFORMATION
  Report Type: Spontaneous
  Country: US (occurrence: US)
  Receive Date: 20190402
  Receipt Date: 20190806
  Transmission Date: 20191004
  Serious: No
  Sender: FDA-Public Use
  Company Number: US-ALNYLAM PHARMACEUTICALS, INC.-ALN-2019-000101

PATIENT
  Age: 63 Year
  Sex: Female
  Weight: 88.89 kg

DRUGS (2)
  1. ONPATTRO [Suspect]
     Active Substance: PATISIRAN SODIUM
     Indication: HEREDITARY NEUROPATHIC AMYLOIDOSIS
     Dosage: 26.5 MILLIGRAM, Q3W
     Route: 042
     Dates: start: 20181228
  2. ONPATTRO [Suspect]
     Active Substance: PATISIRAN SODIUM
     Dosage: 26.5 MILLIGRAM
     Route: 042
     Dates: start: 20190425

REACTIONS (4)
  - Product supply issue [Unknown]
  - Neuralgia [Unknown]
  - Product dose omission [Unknown]
  - Product dose omission [Unknown]

NARRATIVE: CASE EVENT DATE: 20190208
